FAERS Safety Report 9030779 (Version 2)
Quarter: 2013Q1

REPORT INFORMATION
  Report Type: Spontaneous
  Country: MX (occurrence: MX)
  Receive Date: 20130123
  Receipt Date: 20130208
  Transmission Date: 20140127
  Serious: Yes (Hospitalization, Other)
  Sender: FDA-Public Use
  Company Number: PHHY2013MX005432

PATIENT
  Age: 77 Year
  Sex: Female
  Weight: 53 kg

DRUGS (3)
  1. EXFORGE [Suspect]
     Indication: HYPERTENSION
     Dosage: 1 DF(160MG VALS/ 5 MG AMLO), DAILY
     Route: 048
  2. EUTIROX [Concomitant]
     Indication: THYROID DISORDER
     Dosage: 1 DF, DAILY
     Dates: start: 201212
  3. CALTRATE [Concomitant]
     Indication: BLOOD CALCIUM
     Dosage: 1 DF, Q48H
     Dates: start: 201212

REACTIONS (4)
  - Fall [Recovered/Resolved]
  - Loss of consciousness [Recovered/Resolved]
  - Weight decreased [Recovered/Resolved]
  - Hypertension [Recovered/Resolved]
